FAERS Safety Report 7672731-1 (Version None)
Quarter: 2011Q3

REPORT INFORMATION
  Report Type: 
  Country: None (occurrence: None)
  Receive Date: 20110804
  Receipt Date: 20110721
  Transmission Date: 20111222
  Serious: Yes (Other)
  Sender: FDA-Public Use
  Company Number: 2011PV000042

PATIENT
  Age: 68 Year
  Sex: Female

DRUGS (3)
  1. DEPOCYT [Suspect]
     Indication: CENTRAL NERVOUS SYSTEM LYMPHOMA
     Dosage: 50 MG; QOW; INTH
  2. TEMOZOLOMIDE [Suspect]
     Indication: CENTRAL NERVOUS SYSTEM LYMPHOMA
     Dosage: 100 MG/M**2
  3. METHOTREXATE [Suspect]
     Indication: CENTRAL NERVOUS SYSTEM LYMPHOMA
     Dosage: 3000 MG/M**2;     ; IV
     Route: 042

REACTIONS (7)
  - GAIT DISTURBANCE [None]
  - CONSTIPATION [None]
  - CAUDA EQUINA SYNDROME [None]
  - URINARY RETENTION [None]
  - HYPOAESTHESIA [None]
  - ATRIAL FIBRILLATION [None]
  - PAIN IN EXTREMITY [None]
